FAERS Safety Report 17637071 (Version 1)
Quarter: 2020Q2

REPORT INFORMATION
  Report Type: Spontaneous
  Country: US (occurrence: US)
  Receive Date: 20200407
  Receipt Date: 20200407
  Transmission Date: 20200713
  Serious: Yes (Other)
  Sender: FDA-Public Use
  Company Number: US-PFIZER INC-2020137814

PATIENT
  Age: 77 Year
  Sex: Female
  Weight: 53 kg

DRUGS (2)
  1. ESTRING [Suspect]
     Active Substance: ESTRADIOL
     Indication: VAGINAL PROLAPSE
     Dosage: UNK
     Route: 067
     Dates: start: 2013
  2. ESTRACE [Concomitant]
     Active Substance: ESTRADIOL
     Indication: VAGINAL DISORDER
     Dosage: 0.1 MG/G, UNK(0.1MG/GM; APPLY TO THE OUTSIDE OF THE VAGINA)
     Route: 067

REACTIONS (6)
  - Product use issue [Unknown]
  - Retinal vein occlusion [Recovering/Resolving]
  - Macular oedema [Recovering/Resolving]
  - Gait disturbance [Unknown]
  - Scoliosis [Recovering/Resolving]
  - Body height decreased [Unknown]

NARRATIVE: CASE EVENT DATE: 201502
